FAERS Safety Report 5198704-9 (Version None)
Quarter: 2007Q1

REPORT INFORMATION
  Report Type: 
  Country: None (occurrence: None)
  Receive Date: 20070104
  Receipt Date: 20061222
  Transmission Date: 20070707
  Serious: Yes (Hospitalization, Other)
  Sender: FDA-Public Use
  Company Number: US-ELI_LILLY_AND_COMPANY-US200612004222

PATIENT
  Sex: Female

DRUGS (1)
  1. EVISTA [Suspect]
     Dosage: UNK, UNK
     Dates: start: 19910101

REACTIONS (4)
  - BONE DEBRIDEMENT [None]
  - COLLAGEN DISORDER [None]
  - GAIT DISTURBANCE [None]
  - KNEE ARTHROPLASTY [None]
